FAERS Safety Report 6074248-7 (Version None)
Quarter: 2009Q1

REPORT INFORMATION
  Report Type: 
  Country: None (occurrence: None)
  Receive Date: 20090211
  Receipt Date: 20090203
  Transmission Date: 20090719
  Serious: Yes (Other)
  Sender: FDA-Public Use
  Company Number: PHEH2008US09781

PATIENT
  Sex: Female

DRUGS (4)
  1. ZOMETA [Suspect]
     Indication: METASTASES TO BONE
     Dosage: 4 MG, MONTHLY
  2. AREDIA [Suspect]
     Indication: METASTASES TO BONE
     Dosage: UNK
     Dates: start: 19940101
  3. XELODA [Suspect]
     Indication: BREAST CANCER METASTATIC
  4. ANTI-ESTROGENS [Concomitant]
     Indication: BREAST CANCER METASTATIC

REACTIONS (4)
  - FALL [None]
  - FEMUR FRACTURE [None]
  - FOOT FRACTURE [None]
  - FRACTURE TREATMENT [None]
